FAERS Safety Report 14734501 (Version 1)
Quarter: 2018Q2

REPORT INFORMATION
  Report Type: Spontaneous
  Country: PL (occurrence: PL)
  Receive Date: 20180409
  Receipt Date: 20180409
  Transmission Date: 20180711
  Serious: Yes (Hospitalization)
  Sender: FDA-Public Use
  Company Number: PL-ACTELION-A-CH2018-170201

PATIENT
  Age: 61 Year
  Sex: Female

DRUGS (3)
  1. BOSENTAN. [Suspect]
     Active Substance: BOSENTAN
     Indication: PULMONARY ARTERIAL HYPERTENSION
     Dosage: UNK
     Route: 048
     Dates: start: 201704
  2. SILDENAFIL. [Concomitant]
     Active Substance: SILDENAFIL
     Indication: PULMONARY ARTERIAL HYPERTENSION
     Dosage: UNK
     Dates: start: 201704
  3. VELETRI [Suspect]
     Active Substance: EPOPROSTENOL
     Indication: PULMONARY ARTERIAL HYPERTENSION
     Dosage: 29 NG, UNK
     Route: 042
     Dates: start: 201704

REACTIONS (3)
  - Respiratory failure [Unknown]
  - Supraventricular tachycardia [Unknown]
  - Hyperthyroidism [Unknown]

NARRATIVE: CASE EVENT DATE: 20180309
